FAERS Safety Report 6174802-8 (Version None)
Quarter: 2009Q2

REPORT INFORMATION
  Report Type: 
  Country: None (occurrence: None)
  Receive Date: 20090430
  Receipt Date: 20081113
  Transmission Date: 20091009
  Serious: No
  Sender: FDA-Public Use
  Company Number: US-ASTRAZENECA-2008UW25432

PATIENT
  Age: 58 Year
  Sex: Female
  Weight: 69.4 kg

DRUGS (2)
  1. NEXIUM [Suspect]
     Indication: HIATUS HERNIA
     Route: 048
  2. SEREVENT [Concomitant]

REACTIONS (3)
  - ASPIRATION [None]
  - DYSPNOEA [None]
  - INFLAMMATION [None]
